FAERS Safety Report 9621100 (Version 1)
Quarter: 2013Q4

REPORT INFORMATION
  Report Type: Spontaneous
  Country: US (occurrence: US)
  Receive Date: 20131015
  Receipt Date: 20131015
  Transmission Date: 20140711
  Serious: Yes (Hospitalization)
  Sender: FDA-Public Use
  Company Number: US-BAYER-2013-124294

PATIENT
  Age: 40 Year
  Sex: Female
  Weight: 81.63 kg

DRUGS (5)
  1. YAZ [Suspect]
  2. YASMIN [Suspect]
  3. OCELLA [Suspect]
  4. IBUPROFEN [Concomitant]
     Dosage: 800 MG, UNK
     Route: 048
  5. FLEXERIL [Concomitant]
     Dosage: 10 MG Q8H P.R.N.

REACTIONS (1)
  - Pulmonary embolism [Recovered/Resolved]
